FAERS Safety Report 21387338 (Version 1)
Quarter: 2022Q3

REPORT INFORMATION
  Report Type: Spontaneous
  Country: US (occurrence: None)
  Receive Date: 20220926
  Receipt Date: 20220926
  Transmission Date: 20221027
  Serious: Yes (Death)
  Sender: FDA-Public Use
  Company Number: None

PATIENT
  Age: 17 Year
  Sex: Female

DRUGS (2)
  1. NEORAL [Suspect]
     Active Substance: CYCLOSPORINE
     Indication: Transplant
     Dosage: OTHER FREQUENCY : 3 CAPS AM, 2 C PM;?3 CAPS AM, 2 CAPS PM ONE BID   ORAL
     Route: 048
     Dates: start: 20200826, end: 202207
  2. MYCOPHENOLIC ACID [Suspect]
     Active Substance: MYCOPHENOLIC ACID
     Indication: Transplant
     Dosage: OTHER FREQUENCY : 3 T AM, 2 T PM;?3 CAPS AM, 2 CAPS PM 1 BID  ORAL
     Route: 048
     Dates: start: 20210322, end: 202207

REACTIONS (1)
  - Death [None]

NARRATIVE: CASE EVENT DATE: 20220701
